FAERS Safety Report 6325797-5 (Version None)
Quarter: 2009Q3

REPORT INFORMATION
  Report Type: 
  Country: None (occurrence: None)
  Receive Date: 20090824
  Receipt Date: 20090715
  Transmission Date: 20100115
  Serious: No
  Sender: FDA-Public Use
  Company Number: US-ABBOTT-09P-163-0585924-00

PATIENT
  Sex: Female

DRUGS (2)
  1. NIASPAN [Suspect]
     Indication: HIGH DENSITY LIPOPROTEIN DECREASED
     Dates: start: 20090704
  2. FLAX SEED OIL [Concomitant]
     Indication: NUTRITIONAL SUPPORT

REACTIONS (2)
  - PRURITUS [None]
  - RASH ERYTHEMATOUS [None]
